FAERS Safety Report 21440823 (Version 2)
Quarter: 2022Q4

REPORT INFORMATION
  Report Type: Report from Study
  Country: HR (occurrence: HR)
  Receive Date: 20221011
  Receipt Date: 20221022
  Transmission Date: 20230113
  Serious: No
  Sender: FDA-Public Use
  Company Number: HR-NOVARTISPH-NVSC2022HR184909

PATIENT
  Age: 65 Year
  Sex: Female
  Weight: 61 kg

DRUGS (6)
  1. COSENTYX [Suspect]
     Active Substance: SECUKINUMAB
     Indication: Spondyloarthropathy
     Dosage: 150 MG, QMO
     Route: 058
     Dates: start: 20211221, end: 20220710
  2. COSENTYX [Suspect]
     Active Substance: SECUKINUMAB
     Dosage: 150 MG, QMO (1X MONTHLY)
     Route: 058
     Dates: start: 20220922
  3. CONTROLOC [Concomitant]
     Active Substance: PANTOPRAZOLE SODIUM
     Indication: Product used for unknown indication
     Dosage: 20 MG, BID (1X1)
     Route: 048
  4. PREDNISONE [Concomitant]
     Active Substance: PREDNISONE
     Indication: Product used for unknown indication
     Dosage: 2.5 MG, BID(1X1)
     Route: 048
  5. CORYOL [Concomitant]
     Indication: Product used for unknown indication
     Dosage: 6.25 MG, TID(2X1)
     Route: 048
  6. IRUMED [Concomitant]
     Indication: Product used for unknown indication
     Dosage: 5 MG, BID(1X1)
     Route: 048

REACTIONS (13)
  - Pain [Unknown]
  - SARS-CoV-2 test positive [Recovered/Resolved]
  - Hyperthermia [Recovered/Resolved]
  - Myalgia [Recovered/Resolved]
  - Bone pain [Recovered/Resolved]
  - Escherichia urinary tract infection [Recovered/Resolved]
  - Asthenia [Recovered/Resolved]
  - Diarrhoea [Recovered/Resolved]
  - Vomiting [Recovered/Resolved]
  - Pollakiuria [Recovered/Resolved]
  - Weight decreased [Recovered/Resolved]
  - Back pain [Unknown]
  - Malaise [Unknown]

NARRATIVE: CASE EVENT DATE: 20220730
